FAERS Safety Report 8069638-7 (Version None)
Quarter: 2012Q1

REPORT INFORMATION
  Report Type: 
  Country: None (occurrence: None)
  Receive Date: 20120119
  Receipt Date: 20120106
  Transmission Date: 20120608
  Serious: Yes (Hospitalization)
  Sender: FDA-Public Use
  Company Number: 2011HGS-003048

PATIENT
  Age: 82 Year
  Sex: Male
  Weight: 83.9154 kg

DRUGS (12)
  1. BENLYSTA [Suspect]
     Dosage: 10 MG/KG, 1 IN 28 D, INTRAVENOUS DRIP
     Route: 041
     Dates: start: 20110714, end: 20111102
  2. BENAZEPRIL HYDROCHLORIDE [Concomitant]
  3. LORTAB (VICODIN) (PARACETAMOL, HYDROCODONE BITARTRATE) [Concomitant]
  4. BUSPRIONE (BUSPIRONE HYDROCHLORIDE) (BUSPIRONE HYDROCHLORIDE) [Concomitant]
  5. KEPPRA [Concomitant]
  6. LOTREL (AMLODIPINE BESYLATE W/BENAZEPRIL HYDROCHLOR.) (BENAZEPRIL HYDR [Concomitant]
  7. ASPIRIN [Concomitant]
  8. KLONOPIN [Concomitant]
  9. AMLODIPINE [Concomitant]
  10. AMBIEN [Concomitant]
  11. MAGOXIDE (MAGNESIUM OXIDE) (MAGNESIUM OXIDE) [Concomitant]
  12. PRILOSEC (OMEPRAZOLE) (OMEPRAZOLE) [Concomitant]

REACTIONS (6)
  - CONVULSION [None]
  - MIDDLE INSOMNIA [None]
  - DRUG INEFFECTIVE [None]
  - INCONTINENCE [None]
  - AMNESIA [None]
  - CONFUSIONAL STATE [None]
